FAERS Safety Report 9587401 (Version 1)
Quarter: 2013Q4

REPORT INFORMATION
  Report Type: Spontaneous
  Country: US (occurrence: US)
  Receive Date: 20131003
  Receipt Date: 20131003
  Transmission Date: 20140711
  Serious: Yes (Death, Other)
  Sender: FDA-Public Use
  Company Number: US-BRISTOL-MYERS SQUIBB COMPANY-19420397

PATIENT
  Age: 66 Year
  Sex: Female
  Weight: 37.19 kg

DRUGS (6)
  1. ABILIFY TABS [Suspect]
  2. ATIVAN [Concomitant]
  3. ATARAX [Concomitant]
  4. OXYCONTIN [Concomitant]
  5. MORPHINE [Concomitant]
     Dosage: LIQUID MORPHINE
  6. VICODIN [Concomitant]

REACTIONS (5)
  - Chronic obstructive pulmonary disease [Fatal]
  - Dyskinesia [Unknown]
  - Dementia [Unknown]
  - Drug abuse [Unknown]
  - Abnormal behaviour [Unknown]
